FAERS Safety Report 25326534 (Version 1)
Quarter: 2025Q2

REPORT INFORMATION
  Report Type: Spontaneous
  Country: US (occurrence: US)
  Receive Date: 20250516
  Receipt Date: 20250516
  Transmission Date: 20250717
  Serious: No
  Sender: SANOFI AVENTIS
  Company Number: US-SA-2025SA139373

PATIENT
  Age: 66 Year
  Sex: Female

DRUGS (20)
  1. REZUROCK [Suspect]
     Active Substance: BELUMOSUDIL
     Indication: Chronic graft versus host disease
     Dosage: 200 MG, QD
     Route: 048
  2. ALBUTEROL [Concomitant]
     Active Substance: ALBUTEROL
  3. VITAMINS [Concomitant]
     Active Substance: VITAMINS
  4. BEET ROOT [Concomitant]
  5. BISACODYL [Concomitant]
     Active Substance: BISACODYL
  6. CLOBETASOL [Concomitant]
     Active Substance: CLOBETASOL
  7. COQ10 [CONJUGATED LINOLEIC ACID;LINUM USITATISSIMUM SEED OIL;UBIDECARE [Concomitant]
  8. BIFIDOBACTERIUM ANIMALIS LACTIS [Concomitant]
     Active Substance: BIFIDOBACTERIUM ANIMALIS LACTIS
  9. DEXAMETHASONE [Concomitant]
     Active Substance: DEXAMETHASONE
  10. FLUTICASONE [Concomitant]
     Active Substance: FLUTICASONE
  11. FLUOCINOLONE [Concomitant]
     Active Substance: FLUOCINOLONE
  12. FUROSEMIDE [Concomitant]
     Active Substance: FUROSEMIDE
  13. LEVOTHYROXINE [Concomitant]
     Active Substance: LEVOTHYROXINE
  14. LIDOCAINE [Concomitant]
     Active Substance: LIDOCAINE
  15. LORAZEPAM [Concomitant]
     Active Substance: LORAZEPAM
  16. MOTRIN [Concomitant]
     Active Substance: IBUPROFEN
  17. ONDANSETRON [Concomitant]
     Active Substance: ONDANSETRON
  18. OXYCODONE [Concomitant]
     Active Substance: OXYCODONE
  19. POTASSIUM CHLORIDE [Concomitant]
     Active Substance: POTASSIUM CHLORIDE
  20. TRIAMCINOLONE [Concomitant]
     Active Substance: TRIAMCINOLONE

REACTIONS (3)
  - Erythema [Unknown]
  - Skin swelling [Unknown]
  - Pruritus [Unknown]
